FAERS Safety Report 9633159 (Version 2)
Quarter: 2013Q4

REPORT INFORMATION
  Report Type: Spontaneous
  Country: US (occurrence: US)
  Receive Date: 20131020
  Receipt Date: 20131128
  Transmission Date: 20140711
  Serious: No
  Sender: FDA-Public Use
  Company Number: US-009507513-1310USA006813

PATIENT
  Sex: Female
  Weight: 65.31 kg

DRUGS (2)
  1. DULERA [Suspect]
     Indication: CHRONIC OBSTRUCTIVE PULMONARY DISEASE
     Dosage: TWO PUFFS TWICE A DAY
     Route: 055
     Dates: start: 20130717, end: 20131118
  2. DULERA [Suspect]
     Indication: ASTHMA

REACTIONS (3)
  - Dysphonia [Unknown]
  - Drug dose omission [Unknown]
  - Product quality issue [Unknown]
